FAERS Safety Report 11906960 (Version 1)
Quarter: 2016Q1

REPORT INFORMATION
  Report Type: Spontaneous
  Country: US (occurrence: US)
  Receive Date: 20160111
  Receipt Date: 20160111
  Transmission Date: 20160526
  Serious: Yes (Other)
  Sender: FDA-Public Use
  Company Number: US-ENDO PHARMACEUTICALS INC.-2016-000053

PATIENT
  Sex: Female

DRUGS (6)
  1. TRIAMCINOLONE ACETONIDE CREAM 0.1 [Suspect]
     Active Substance: TRIAMCINOLONE ACETONIDE
     Indication: ECZEMA
  2. HALOBETASOL [Concomitant]
     Active Substance: HALOBETASOL PROPIONATE
     Indication: PRODUCT USED FOR UNKNOWN INDICATION
     Route: 065
     Dates: start: 2004
  3. TRIAMCINOLONE ACETONIDE CREAM 0.1 [Suspect]
     Active Substance: TRIAMCINOLONE ACETONIDE
     Indication: FUNGAL SKIN INFECTION
     Dosage: APPLY CREAM TO BOTH LEGS (80 GRAMS PER PLASTIC TUBE)
     Route: 061
     Dates: start: 2004
  4. TRIAMCINOLONE ACETONIDE CREAM 0.1 [Suspect]
     Active Substance: TRIAMCINOLONE ACETONIDE
     Indication: ERYTHEMA
  5. ANTIFUNGAL CREAM [Concomitant]
     Active Substance: MICONAZOLE NITRATE
     Indication: PRODUCT USED FOR UNKNOWN INDICATION
     Route: 065
     Dates: start: 2004
  6. HYDROCORTISONE LOTION [Concomitant]
     Indication: PRODUCT USED FOR UNKNOWN INDICATION
     Route: 065
     Dates: start: 2004

REACTIONS (6)
  - Foot fracture [Unknown]
  - Thyroid cancer [Unknown]
  - Fungal skin infection [Unknown]
  - Dry skin [Not Recovered/Not Resolved]
  - Unevaluable event [Unknown]
  - Product outer packaging issue [Not Recovered/Not Resolved]

NARRATIVE: CASE EVENT DATE: 2005
